FAERS Safety Report 5095123-0 (Version None)
Quarter: 2006Q3

REPORT INFORMATION
  Report Type: 
  Country: None (occurrence: None)
  Receive Date: 20060830
  Receipt Date: 20060821
  Transmission Date: 20061208
  Serious: No
  Sender: FDA-Public Use
  Company Number: TPA2006A01384

PATIENT
  Age: 57 Year
  Sex: Female
  Weight: 72.5755 kg

DRUGS (11)
  1. ACTOS [Suspect]
     Indication: DIABETES MELLITUS NON-INSULIN-DEPENDENT
     Dosage: SEE IMAGE
     Route: 048
     Dates: start: 20031103, end: 20031124
  2. ACTOS [Suspect]
     Indication: DIABETES MELLITUS NON-INSULIN-DEPENDENT
     Dosage: SEE IMAGE
     Route: 048
     Dates: start: 20031124, end: 20031222
  3. ACTOS [Suspect]
     Indication: DIABETES MELLITUS NON-INSULIN-DEPENDENT
     Dosage: SEE IMAGE
     Route: 048
     Dates: start: 20031222
  4. METFORMIN HCL [Concomitant]
  5. ZOCOR [Concomitant]
  6. PEPCID [Concomitant]
  7. XANAX [Concomitant]
  8. LISINOPRIL [Concomitant]
  9. CELEXA [Concomitant]
  10. . [Concomitant]
  11. . [Concomitant]

REACTIONS (7)
  - GINGIVAL DISCOLOURATION [None]
  - LYMPHADENOPATHY [None]
  - OSTEOMYELITIS [None]
  - TOOTH DISCOLOURATION [None]
  - TOOTH DISORDER [None]
  - TOOTH FRACTURE [None]
  - TOOTH LOSS [None]
